FAERS Safety Report 10176321 (Version 2)
Quarter: 2014Q2

REPORT INFORMATION
  Report Type: Spontaneous
  Country: JP (occurrence: JP)
  Receive Date: 20140516
  Receipt Date: 20140530
  Transmission Date: 20141212
  Serious: No
  Sender: FDA-Public Use
  Company Number: JP-ASTRAZENECA-2014SE32196

PATIENT
  Age: 62 Year
  Sex: Female
  Weight: 46 kg

DRUGS (5)
  1. NEXIUM [Suspect]
     Route: 048
     Dates: start: 20140303, end: 20140428
  2. ALDACTONE A [Suspect]
     Route: 048
     Dates: start: 20130310
  3. LASIX [Suspect]
     Route: 048
     Dates: start: 20140310
  4. LIVACT [Concomitant]
     Route: 048
     Dates: start: 20140303
  5. SAMSCA [Concomitant]
     Route: 048
     Dates: start: 20140304, end: 20140420

REACTIONS (3)
  - Face oedema [Unknown]
  - Hepatic enzyme increased [Unknown]
  - Drug eruption [Not Recovered/Not Resolved]
